FAERS Safety Report 14203320 (Version 1)
Quarter: 2017Q4

REPORT INFORMATION
  Report Type: Spontaneous
  Country: RO (occurrence: RO)
  Receive Date: 20171120
  Receipt Date: 20171120
  Transmission Date: 20180321
  Serious: Yes (Hospitalization, Other)
  Sender: FDA-Public Use
  Company Number: RO-STRIDES ARCOLAB LIMITED-2017SP014034

PATIENT

DRUGS (4)
  1. IMIQUIMOD. [Suspect]
     Active Substance: IMIQUIMOD
     Indication: RASH ERYTHEMATOUS
     Dosage: UNK, BED TIME
     Route: 061
  2. INDAPAMIDE. [Suspect]
     Active Substance: INDAPAMIDE
     Indication: HYPERTENSION
     Dosage: 1.5 MG, QD
     Route: 065
  3. NEBIVOLOL. [Suspect]
     Active Substance: NEBIVOLOL
     Indication: HYPERTENSION
     Dosage: 5 MG, QD
     Route: 065
  4. THEOPHYLLIN [Suspect]
     Active Substance: THEOPHYLLINE ANHYDROUS
     Indication: HYPERTENSION
     Dosage: 350 MG, QD
     Route: 065

REACTIONS (5)
  - Skin erosion [Unknown]
  - Hyperaemia [Unknown]
  - Therapy partial responder [Unknown]
  - Off label use [Unknown]
  - Prescription drug used without a prescription [Unknown]
